FAERS Safety Report 4939541-7 (Version None)
Quarter: 2006Q1

REPORT INFORMATION
  Report Type: 
  Country: None (occurrence: None)
  Receive Date: 20060306
  Receipt Date: 20060220
  Transmission Date: 20060701
  Serious: Yes (Hospitalization)
  Sender: FDA-Public Use
  Company Number: 2003174660NO

PATIENT
  Age: 78 Year
  Sex: Male

DRUGS (15)
  1. ALDACTONE [Suspect]
     Indication: ILL-DEFINED DISORDER
     Dosage: 50 MG (50 MG, 1 IN 1 D), ORAL
     Route: 048
  2. POTASSIUM CHLORIDE [Suspect]
     Indication: ILL-DEFINED DISORDER
     Dosage: 1500MG IN THE MORNING, 750MG IN THE EVE (750 MG, 3 IN 1 D), ORAL
     Route: 048
  3. CAPOTEN [Suspect]
     Indication: ILL-DEFINED DISORDER
     Dosage: 100  MG, (50 MG, 2 IN 1 D), ORAL
     Route: 048
  4. FUROSEMIDE [Suspect]
     Indication: ILL-DEFINED DISORDER
     Dosage: 120 MG (40 MG, 3 IN 1 D), ORAL
     Route: 048
  5. MUCOMYST [Concomitant]
  6. ZOPICLONE [Concomitant]
  7. PARACET (PARACETAMOL) [Concomitant]
  8. PARALGIN FORTE (CODEINE PHOSPHATE, PARACETAMOL) [Concomitant]
  9. NITROGLYCERIN [Concomitant]
  10. AFIPRAN (METOCLOPRAMIDE HYDROCHLORIDE) [Concomitant]
  11. NEXIUM [Concomitant]
  12. SELEXID (PIVMECILLINAM HYDROCHLORIDE) [Concomitant]
  13. MONOKET [Concomitant]
  14. ZOCOR [Concomitant]
  15. METOPROLOL SUCCINATE [Concomitant]

REACTIONS (7)
  - ABDOMINAL PAIN UPPER [None]
  - BLOOD SODIUM DECREASED [None]
  - DEHYDRATION [None]
  - HAEMOGLOBIN DECREASED [None]
  - ORAL INTAKE REDUCED [None]
  - PRURITUS [None]
  - RENAL FAILURE [None]
